FAERS Safety Report 23970138 (Version 1)
Quarter: 2024Q2

REPORT INFORMATION
  Report Type: Spontaneous
  Country: DE (occurrence: DE)
  Receive Date: 20240613
  Receipt Date: 20240613
  Transmission Date: 20240716
  Serious: Yes (Other)
  Sender: FDA-Public Use
  Company Number: DE-TEVA-VS-3203537

PATIENT
  Age: 65 Year
  Sex: Male

DRUGS (5)
  1. SIMVASTATIN [Suspect]
     Active Substance: SIMVASTATIN
     Indication: Blood cholesterol increased
     Dosage: IN THE EVENING
     Route: 048
     Dates: start: 202310
  2. SIMVASTATIN [Suspect]
     Active Substance: SIMVASTATIN
     Indication: Blood cholesterol increased
     Route: 048
  3. METFORMIN [Concomitant]
     Active Substance: METFORMIN HYDROCHLORIDE
     Dosage: HALF A TABLET AT LUNCHTIME AND 1X TABLET IN THE EVENING, METFORMIN 1000-1A PHARMA
  4. CETIRIZINE [Concomitant]
     Active Substance: CETIRIZINE HYDROCHLORIDE
     Indication: Histamine intolerance
     Dosage: TOLD HIM TO TAKE TWO 1-0-1
  5. MARCUMAR [Concomitant]
     Active Substance: PHENPROCOUMON

REACTIONS (5)
  - Diabetes mellitus [Unknown]
  - Hypertension [Recovered/Resolved]
  - Histamine intolerance [Unknown]
  - Low density lipoprotein increased [Unknown]
  - Muscle spasms [Unknown]
